FAERS Safety Report 14235799 (Version 2)
Quarter: 2018Q1

REPORT INFORMATION
  Report Type: Report from Study
  Country: JP (occurrence: JP)
  Receive Date: 20171129
  Receipt Date: 20180316
  Transmission Date: 20180508
  Serious: Yes (Hospitalization, Other)
  Sender: FDA-Public Use
  Company Number: JP-VIFOR (INTERNATIONAL) INC.-VIT-2017-12988

PATIENT
  Age: 79 Year
  Sex: Male
  Weight: 60.2 kg

DRUGS (21)
  1. BERAPROST SODIUM [Concomitant]
     Active Substance: BERAPROST SODIUM
     Route: 048
  2. COCARL [Concomitant]
     Active Substance: ACETAMINOPHEN
     Route: 048
     Dates: end: 20170301
  3. SENNOSIDE A+B CALCIUM [Concomitant]
     Active Substance: SENNOSIDES A AND B
     Route: 048
  4. EPINASTINE HYDROCHLORIDE. [Concomitant]
     Active Substance: EPINASTINE HYDROCHLORIDE
     Route: 048
  5. AMEZINIUM METILSULFATE [Concomitant]
     Active Substance: AMEZINIUM METILSULFATE
     Route: 048
  6. LUNESTA [Concomitant]
     Active Substance: ESZOPICLONE
     Route: 048
  7. OXAROL [Concomitant]
     Active Substance: MAXACALCITOL
  8. LANSOPRAZOLE. [Concomitant]
     Active Substance: LANSOPRAZOLE
     Route: 048
  9. LOXOPROFEN SODIUM [Concomitant]
     Active Substance: LOXOPROFEN SODIUM
     Dosage: 1 SHEET
     Route: 050
  10. VELPHORO [Suspect]
     Active Substance: FERRIC OXYHYDROXIDE
     Indication: HYPERPHOSPHATAEMIA
     Route: 048
     Dates: start: 20170220, end: 20170515
  11. CALCIUM CARBONATE. [Concomitant]
     Active Substance: CALCIUM CARBONATE
     Indication: HYPERPHOSPHATAEMIA
     Route: 048
  12. TOCOPHERYL NICOTINATE [Concomitant]
     Active Substance: TOCOPHERYL NICOTINATE, D-.ALPHA.
     Route: 048
  13. HEPARINOID [Concomitant]
     Active Substance: CHONDROITIN SULFATE (BOVINE)
     Route: 050
     Dates: start: 20170220
  14. DIFLUCORTOLONE VALERATE [Concomitant]
     Active Substance: DIFLUCORTOLONE VALERATE
     Route: 050
     Dates: start: 20170220, end: 20170316
  15. ZEFNART [Concomitant]
     Route: 050
     Dates: start: 20170413, end: 20170531
  16. REGPARA [Concomitant]
     Active Substance: CINACALCET HYDROCHLORIDE
     Route: 048
  17. FOSRENOL [Concomitant]
     Active Substance: LANTHANUM CARBONATE
     Route: 048
     Dates: start: 20170515
  18. KAYEXALATE [Concomitant]
     Active Substance: SODIUM POLYSTYRENE SULFONATE
     Route: 048
  19. RIVOTRIL [Concomitant]
     Active Substance: CLONAZEPAM
     Route: 048
  20. LYRICA [Concomitant]
     Active Substance: PREGABALIN
     Route: 048
  21. JUVELA [Concomitant]
     Active Substance: .ALPHA.-TOCOPHEROL\RETINOL
     Route: 050

REACTIONS (2)
  - Transient ischaemic attack [Recovering/Resolving]
  - Haemoglobin increased [Unknown]

NARRATIVE: CASE EVENT DATE: 20170509
